FAERS Safety Report 7149010-4 (Version None)
Quarter: 2010Q4

REPORT INFORMATION
  Report Type: 
  Country: None (occurrence: None)
  Receive Date: 20101124
  Receipt Date: 20101113
  Transmission Date: 20110411
  Serious: Yes (Death)
  Sender: FDA-Public Use
  Company Number: 2010P1002605

PATIENT
  Sex: Male

DRUGS (1)
  1. FENTANYL-25 [Suspect]
     Indication: PULMONARY FIBROSIS
     Dosage: 25 MCG/HR;Q72H;TDER
     Route: 062
     Dates: start: 20090901, end: 20100816

REACTIONS (2)
  - ASTHENIA [None]
  - MOVEMENT DISORDER [None]
